FAERS Safety Report 4319925-0 (Version None)
Quarter: 2004Q1

REPORT INFORMATION
  Report Type: 
  Country: None (occurrence: None)
  Receive Date: 20040317
  Receipt Date: 20040305
  Transmission Date: 20041129
  Serious: Yes (Hospitalization)
  Sender: FDA-Public Use
  Company Number: 04P-163-0253316-00

PATIENT
  Age: 68 Year
  Sex: Female
  Weight: 78 kg

DRUGS (10)
  1. VICODIN [Suspect]
     Indication: PAIN
     Dosage: 1-2 TABLETS EVERY 4-6 HOURS AS NEEDED
  2. PANTOPRAZOLE [Concomitant]
  3. FUROSEMIDE [Concomitant]
  4. DOCUSATE SODIUM [Concomitant]
  5. SENNA FRUIT [Concomitant]
  6. MORPHINE SULFATE [Concomitant]
  7. MAGNESIUM HYDROXIDE TAB [Concomitant]
  8. NIDFEDIPINE [Concomitant]
  9. RANITIDINE HYDROCHLORIDE [Concomitant]
  10. ATRASENTAN [Concomitant]

REACTIONS (2)
  - ASTHENIA [None]
  - FATIGUE [None]
